FAERS Safety Report 23504880 (Version 1)
Quarter: 2024Q1

REPORT INFORMATION
  Report Type: Spontaneous
  Country: CA (occurrence: CA)
  Receive Date: 20240209
  Receipt Date: 20240209
  Transmission Date: 20240410
  Serious: No
  Sender: FDA-Public Use
  Company Number: None

PATIENT
  Age: 37 Year
  Sex: Male

DRUGS (8)
  1. GABAPENTIN [Suspect]
     Active Substance: GABAPENTIN
     Indication: Drug use disorder
     Dosage: 1200 MILLIGRAM, QD (EVERY 1 DAY)
     Route: 065
  2. GABAPENTIN [Suspect]
     Active Substance: GABAPENTIN
     Dosage: 900 MILLIGRAM, QD (EVERY 1 DAY) (DOSE REDUCED)
     Route: 065
  3. Dextromethorphan Hydrobromide/Doxylamine Hydrogen Succinate/Pseudoephe [Concomitant]
     Indication: Insomnia
     Dosage: UNK, QD (EVERY 1 DAY) (354 ML BOTTLES, 354 MG DXM) (NIGHTLY)
     Route: 065
  4. Dextromethorphan Hydrobromide/Doxylamine Hydrogen Succinate/Pseudoephe [Concomitant]
     Indication: Anxiety
     Dosage: UNK, QD (120 ML OF NYQUILTM LIQUID (120 MG DXM) IN 24 HOURS
     Route: 065
  5. Dextromethorphan Hydrobromide/Doxylamine Hydrogen Succinate/Pseudoephe [Concomitant]
     Dosage: 1 DOSAGE FORM, QD (EVERY 1 DAY) (EDUCTION IN DXM USE FROM 3 TO 1 BOTTLE/DAY (1062 MG TO 354 MG DXM D
     Route: 065
  6. NALTREXONE [Concomitant]
     Active Substance: NALTREXONE
     Indication: Drug use disorder
     Dosage: 100 MILLIGRAM, QD (EVERY 1 DAY) (INCREASED)
     Route: 065
  7. NALTREXONE [Concomitant]
     Active Substance: NALTREXONE
     Dosage: 50 MILLIGRAM, QD (EVERY 1 DAY) (INCREASED)
     Route: 065
  8. NALTREXONE [Concomitant]
     Active Substance: NALTREXONE
     Dosage: 25 MILLIGRAM, QD (EVERY 1 DAY)
     Route: 065

REACTIONS (1)
  - Sedation [Unknown]
